FAERS Safety Report 9416929 (Version 1)
Quarter: 2013Q3

REPORT INFORMATION
  Report Type: Spontaneous
  Country: JP (occurrence: JP)
  Receive Date: 20130719
  Receipt Date: 20130719
  Transmission Date: 20140515
  Serious: Yes (Other)
  Sender: FDA-Public Use
  Company Number: 2013P1012038

PATIENT
  Age: 54 Year
  Sex: Male

DRUGS (2)
  1. LAMOTRIGINE [Suspect]
     Indication: DEPRESSIVE SYMPTOM
  2. ARIPIPRAZOLE [Suspect]
     Indication: BIPOLAR I DISORDER

REACTIONS (1)
  - Neuroleptic malignant syndrome [None]
